FAERS Safety Report 11269076 (Version 3)
Quarter: 2015Q3

REPORT INFORMATION
  Report Type: Spontaneous
  Country: US (occurrence: None)
  Receive Date: 20150710
  Receipt Date: 20150720
  Transmission Date: 20151125
  Serious: Yes (Hospitalization)
  Sender: FDA-Public Use
  Company Number: 2015SGN01026

PATIENT
  Age: 43 Year
  Sex: Male
  Weight: 144.2 kg

DRUGS (27)
  1. DOXORUBICIN (DOXORUBICIN) INJECTION [Suspect]
     Active Substance: DOXORUBICIN
     Indication: DIFFUSE LARGE B-CELL LYMPHOMA
     Dosage: 50 MG/M2, Q21D
     Route: 042
     Dates: start: 20150515, end: 20150603
  2. CARISOPRODOL. [Concomitant]
     Active Substance: CARISOPRODOL
  3. DOCUSATE SODIUM. [Concomitant]
     Active Substance: DOCUSATE SODIUM
  4. BRENTUXIMAB VEDOTIN (BRENTUXIMAB VEDOTIN) INJECTION [Suspect]
     Active Substance: BRENTUXIMAB VEDOTIN
     Indication: DIFFUSE LARGE B-CELL LYMPHOMA
     Dosage: 1.8 MG/KG, Q21D
     Route: 042
     Dates: start: 20150515, end: 20150603
  5. PROCHLORPERAZINE. [Concomitant]
     Active Substance: PROCHLORPERAZINE
  6. CALCIUM CARBONATE. [Concomitant]
     Active Substance: CALCIUM CARBONATE
  7. MAGNESIUM CITRATE. [Concomitant]
     Active Substance: MAGNESIUM CITRATE
  8. NALOXONE [Concomitant]
     Active Substance: NALOXONE
  9. MIRALAX (MACROGOL) [Concomitant]
  10. POLYETHYLENE GLYCOL (MACROGOL) [Concomitant]
     Active Substance: POLYETHYLENE GLYCOLS
  11. PREDNISONE (PREDNISONE) ORAL [Suspect]
     Active Substance: PREDNISONE
     Indication: DIFFUSE LARGE B-CELL LYMPHOMA
     Dosage: 100 MG, QCYCLE
     Route: 048
     Dates: start: 20150515, end: 20150607
  12. DEXAMETHASONE. [Concomitant]
     Active Substance: DEXAMETHASONE
  13. MORPHINE [Concomitant]
     Active Substance: MORPHINE
  14. POTASSIUM CHLORIDE. [Concomitant]
     Active Substance: POTASSIUM CHLORIDE
  15. SENNA (SENNA ALEXABDRINA) [Concomitant]
  16. ALTEPLASE [Concomitant]
     Active Substance: ALTEPLASE
  17. CYCLOPHOSPHAMIDE (CYCLOPHOSPHAMIDE) INJECTION [Suspect]
     Active Substance: CYCLOPHOSPHAMIDE
     Indication: DIFFUSE LARGE B-CELL LYMPHOMA
     Dosage: 750 MG/M2, Q21D
     Route: 042
     Dates: start: 20150515, end: 20150603
  18. LORAZEPAM. [Concomitant]
     Active Substance: LORAZEPAM
  19. BISACODYL. [Concomitant]
     Active Substance: BISACODYL
  20. GABAPENTIN. [Concomitant]
     Active Substance: GABAPENTIN
  21. HEPARIN [Concomitant]
     Active Substance: HEPARIN SODIUM
  22. CHOLECALCIFEROL (COLECALCIFEROL) [Concomitant]
  23. FAMOTIDINE. [Concomitant]
     Active Substance: FAMOTIDINE
  24. DOCUSATE [Concomitant]
     Active Substance: DOCUSATE
  25. RITUXIMAB (RITUXIMAB) INJECTION [Suspect]
     Active Substance: RITUXIMAB
     Indication: DIFFUSE LARGE B-CELL LYMPHOMA
     Dosage: 375 MG/M2, Q21D
     Route: 042
     Dates: start: 20150515, end: 20150603
  26. LUBIPROSTONE [Concomitant]
     Active Substance: LUBIPROSTONE
  27. FUROSEMIDE. [Concomitant]
     Active Substance: FUROSEMIDE

REACTIONS (2)
  - Febrile neutropenia [None]
  - Pneumocystis jirovecii pneumonia [None]

NARRATIVE: CASE EVENT DATE: 20150615
